FAERS Safety Report 5204474-8 (Version None)
Quarter: 2007Q1

REPORT INFORMATION
  Report Type: 
  Country: None (occurrence: None)
  Receive Date: 20070110
  Receipt Date: 20060406
  Transmission Date: 20070707
  Serious: No
  Sender: FDA-Public Use
  Company Number: US-BRISTOL-MYERS SQUIBB COMPANY-13339650

PATIENT
  Age: 11 Year
  Sex: Female
  Weight: 45 kg

DRUGS (4)
  1. ABILIFY [Suspect]
     Indication: MOOD SWINGS
     Route: 048
  2. ABILIFY [Suspect]
     Indication: BIPOLAR DISORDER
     Route: 048
  3. GALANTAMINE HYDROBROMIDE [Concomitant]
  4. TENEX [Concomitant]

REACTIONS (2)
  - AGGRESSION [None]
  - AGITATION [None]
